FAERS Safety Report 23748171 (Version 3)
Quarter: 2024Q3

REPORT INFORMATION
  Report Type: Spontaneous
  Country: JP (occurrence: JP)
  Receive Date: 20240416
  Receipt Date: 20240918
  Transmission Date: 20241016
  Serious: Yes (Death, Hospitalization, Other)
  Sender: MERCK
  Company Number: JP-MSD-M2024-14406

PATIENT
  Age: 9 Decade
  Sex: Male

DRUGS (1)
  1. KEYTRUDA [Suspect]
     Active Substance: PEMBROLIZUMAB
     Indication: Transitional cell carcinoma
     Dosage: 200 MILLIGRAM, Q3W
     Route: 041
     Dates: start: 20240126, end: 20240329

REACTIONS (4)
  - Death [Fatal]
  - Epilepsy [Unknown]
  - Blood pressure decreased [Unknown]
  - Infection [Unknown]

NARRATIVE: CASE EVENT DATE: 20240401
